FAERS Safety Report 5635448-0 (Version None)
Quarter: 2008Q1

REPORT INFORMATION
  Report Type: 
  Country: None (occurrence: None)
  Receive Date: 20080222
  Receipt Date: 20080212
  Transmission Date: 20080703
  Serious: Yes (Disabling)
  Sender: FDA-Public Use
  Company Number: GB-PFIZER INC-2008013912

PATIENT
  Age: 52 Year
  Sex: Female
  Weight: 87 kg

DRUGS (5)
  1. CHANTIX [Suspect]
     Indication: SMOKING CESSATION THERAPY
     Route: 048
     Dates: start: 20071126, end: 20080101
  2. ARTHROTEC [Concomitant]
     Indication: PAIN
     Route: 048
  3. LEVOTHYROXINE SODIUM [Concomitant]
     Indication: HYPOTHYROIDISM
     Route: 048
  4. PREMIQUE [Concomitant]
     Indication: HORMONE REPLACEMENT THERAPY
     Route: 048
  5. SSRI [Concomitant]

REACTIONS (3)
  - HEMIPLEGIA [None]
  - HYPOAESTHESIA [None]
  - PARAESTHESIA [None]
